FAERS Safety Report 19159263 (Version 1)
Quarter: 2021Q2

REPORT INFORMATION
  Report Type: Report from Study
  Country: GB (occurrence: GB)
  Receive Date: 20210420
  Receipt Date: 20210420
  Transmission Date: 20210717
  Serious: Yes (Other)
  Sender: FDA-Public Use
  Company Number: NVSC2021GB069448

PATIENT
  Sex: Male

DRUGS (1)
  1. HYRIMOZ [Suspect]
     Active Substance: ADALIMUMAB-ADAZ
     Indication: PSORIASIS
     Dosage: 1 DF, Q2W (40/0.8 MG/ML)
     Route: 058

REACTIONS (7)
  - Gallbladder disorder [Unknown]
  - Pain [Unknown]
  - Nephrolithiasis [Unknown]
  - Psoriasis [Unknown]
  - Poor quality sleep [Unknown]
  - Product dose omission issue [Unknown]
  - Nausea [Unknown]
